FAERS Safety Report 14033520 (Version 1)
Quarter: 2017Q4

REPORT INFORMATION
  Report Type: Spontaneous
  Country: FR (occurrence: FR)
  Receive Date: 20171003
  Receipt Date: 20171003
  Transmission Date: 20180321
  Serious: Yes (Other)
  Sender: FDA-Public Use
  Company Number: FR-MERCK KGAA-2028568

PATIENT
  Age: 63 Year
  Sex: Female

DRUGS (2)
  1. NOVOTHYROX [Suspect]
     Active Substance: LEVOTHYROXINE SODIUM
     Indication: AUTOIMMUNE THYROIDITIS
     Route: 048
  2. NOVOTHYROX [Suspect]
     Active Substance: LEVOTHYROXINE SODIUM
     Route: 048

REACTIONS (5)
  - Arthralgia [Unknown]
  - Abdominal pain upper [Unknown]
  - Diffuse alopecia [Unknown]
  - Blood thyroid stimulating hormone [Unknown]
  - Headache [Unknown]

NARRATIVE: CASE EVENT DATE: 201705
